FAERS Safety Report 15665809 (Version 1)
Quarter: 2018Q4

REPORT INFORMATION
  Report Type: Spontaneous
  Country: US (occurrence: US)
  Receive Date: 20181128
  Receipt Date: 20181128
  Transmission Date: 20190205
  Serious: No
  Sender: FDA-Public Use
  Company Number: US-PFIZER INC-2018472240

PATIENT
  Age: 77 Year
  Sex: Female

DRUGS (1)
  1. DILANTIN [Suspect]
     Active Substance: PHENYTOIN
     Dosage: 200 MG, UNK
     Dates: start: 1998

REACTIONS (8)
  - Skin disorder [Unknown]
  - Dry skin [Unknown]
  - Dysgeusia [Unknown]
  - Dysphonia [Unknown]
  - Weight decreased [Unknown]
  - Decreased appetite [Unknown]
  - Balance disorder [Unknown]
  - Intentional product use issue [Unknown]
